FAERS Safety Report 20407470 (Version 1)
Quarter: 2022Q1

REPORT INFORMATION
  Report Type: Spontaneous
  Country: GB (occurrence: GB)
  Receive Date: 20220131
  Receipt Date: 20220131
  Transmission Date: 20220423
  Serious: Yes (Other)
  Sender: FDA-Public Use
  Company Number: None

PATIENT
  Age: 72 Year
  Sex: Female
  Weight: 96.16 kg

DRUGS (5)
  1. METHOTREXATE SODIUM [Interacting]
     Active Substance: METHOTREXATE SODIUM
     Indication: Rheumatoid arthritis
     Dosage: UNK
  2. ASTRAZENECA COVID-19 VACCINE [Interacting]
     Active Substance: AZD-1222
     Indication: COVID-19 immunisation
     Dosage: DOSE 1, SINGLE
     Route: 051
     Dates: start: 20210603, end: 20210603
  3. SPIRIVA [Concomitant]
     Active Substance: TIOTROPIUM BROMIDE MONOHYDRATE
     Dosage: 18 MG
  4. BISOPROLOL [Concomitant]
     Active Substance: BISOPROLOL
     Dosage: 6.25 MG, 2X/DAY(IN THE MORNING AND AT NIGHT)
  5. FOLIC ACID [Concomitant]
     Active Substance: FOLIC ACID
     Dosage: UNK

REACTIONS (3)
  - Atrial fibrillation [Unknown]
  - Condition aggravated [Unknown]
  - Drug interaction [Unknown]

NARRATIVE: CASE EVENT DATE: 20210603
